FAERS Safety Report 7083549-5 (Version None)
Quarter: 2010Q4

REPORT INFORMATION
  Report Type: 
  Country: None (occurrence: None)
  Receive Date: 20101103
  Receipt Date: 20101103
  Transmission Date: 20110411
  Serious: Yes (Other)
  Sender: FDA-Public Use
  Company Number: None

PATIENT
  Age: 67 Year
  Sex: Female
  Weight: 68.4932 kg

DRUGS (1)
  1. LEVAQUIN [Suspect]
     Dosage: 500MG 1 XDAY PO
     Route: 048

REACTIONS (1)
  - ARTHRALGIA [None]
